FAERS Safety Report 16810170 (Version 1)
Quarter: 2019Q3

REPORT INFORMATION
  Report Type: Spontaneous
  Country: US (occurrence: US)
  Receive Date: 20190916
  Receipt Date: 20190916
  Transmission Date: 20191005
  Serious: No
  Sender: FDA-Public Use
  Company Number: US-PFIZER INC-2019395264

PATIENT
  Age: 20 Year
  Sex: Male

DRUGS (3)
  1. GENOTROPIN [Suspect]
     Active Substance: SOMATROPIN
     Indication: ALPHA-1 ANTI-TRYPSIN ABNORMAL
  2. GENOTROPIN [Suspect]
     Active Substance: SOMATROPIN
     Indication: CHARGE SYNDROME
  3. GENOTROPIN [Suspect]
     Active Substance: SOMATROPIN
     Indication: SECONDARY HYPOGONADISM
     Dosage: 3.0 MG, DAILY

REACTIONS (1)
  - Insulin-like growth factor increased [Unknown]
